FAERS Safety Report 13824348 (Version 1)
Quarter: 2017Q3

REPORT INFORMATION
  Report Type: Spontaneous
  Country: US (occurrence: US)
  Receive Date: 20170801
  Receipt Date: 20170801
  Transmission Date: 20171127
  Serious: Yes (Life-Threatening, Hospitalization, Disabling)
  Sender: FDA-Public Use
  Company Number: None

PATIENT
  Age: 54 Year
  Sex: Female

DRUGS (1)
  1. CELESTONE SOLUSPAN [Suspect]
     Active Substance: BETAMETHASONE ACETATE\BETAMETHASONE SODIUM PHOSPHATE
     Indication: NECK PAIN
     Dosage: QUANTITY:1 INJECTION(S);OTHER FREQUENCY:11 MONTHS;?
     Route: 008
     Dates: start: 20140829, end: 20150803

REACTIONS (3)
  - Paralysis [None]
  - Quadriplegia [None]
  - Spinal cord infarction [None]

NARRATIVE: CASE EVENT DATE: 20150803
